FAERS Safety Report 5603266-5 (Version None)
Quarter: 2008Q1

REPORT INFORMATION
  Report Type: 
  Country: None (occurrence: None)
  Receive Date: 20080122
  Receipt Date: 20080110
  Transmission Date: 20080703
  Serious: Yes (Other)
  Sender: FDA-Public Use
  Company Number: S07-IRL-05572-01

PATIENT
  Age: 47 Year
  Sex: Female

DRUGS (5)
  1. CITALOPRAM HYDROBROMIDE [Suspect]
     Indication: DEPRESSION
     Dosage: 20 MG QD PO
     Route: 048
     Dates: start: 20061223
  2. ANTASTROZOLE [Concomitant]
  3. LIPITOR [Concomitant]
  4. CALCIUM CARBONATE [Concomitant]
  5. TAMOXIFEN [Concomitant]

REACTIONS (4)
  - COUGH [None]
  - POSTNASAL DRIP [None]
  - SINUSITIS [None]
  - THROAT TIGHTNESS [None]
